FAERS Safety Report 24139754 (Version 1)
Quarter: 2024Q3

REPORT INFORMATION
  Report Type: Spontaneous
  Country: RU (occurrence: None)
  Receive Date: 20240726
  Receipt Date: 20240726
  Transmission Date: 20241016
  Serious: Yes (Hospitalization, Other)
  Sender: ASTRAZENECA
  Company Number: 2024A165795

PATIENT
  Age: 67 Year
  Sex: Female
  Weight: 76 kg

DRUGS (1)
  1. DAPAGLIFLOZIN [Suspect]
     Active Substance: DAPAGLIFLOZIN
     Route: 048
     Dates: start: 20240525, end: 20240614

REACTIONS (4)
  - Atrial flutter [Recovered/Resolved]
  - Dyspnoea [Recovered/Resolved]
  - Oedema [Recovered/Resolved]
  - Condition aggravated [Recovered/Resolved]

NARRATIVE: CASE EVENT DATE: 20240501
